FAERS Safety Report 5115448-X (Version None)
Quarter: 2006Q3

REPORT INFORMATION
  Report Type: 
  Country: None (occurrence: None)
  Receive Date: 20060922
  Receipt Date: 20060905
  Transmission Date: 20061208
  Serious: Yes (Hospitalization)
  Sender: FDA-Public Use
  Company Number: 6018844

PATIENT
  Age: 65 Year
  Sex: Male

DRUGS (9)
  1. BISOPROLOL FUMARATE [Suspect]
     Indication: HYPERTENSION
     Dosage: 5 MG (5 MG,1 IN 1 D)
     Route: 048
     Dates: start: 20050812, end: 20050815
  2. MICARDIS [Suspect]
     Indication: HYPERTENSION
     Dosage: 400 MG (400 MG,1 IN 1 D)
     Route: 048
     Dates: start: 20050722, end: 20050811
  3. RYTHMODAN P (DISOPYRAMIDE PHOSPHATE) [Concomitant]
  4. THEO-DUR [Concomitant]
  5. MUCODYNE (CARBOCISTEINE) [Concomitant]
  6. QVAR              (BECLOMETASONE DIPROPIONATE) [Concomitant]
  7. DIHYDROCODEINE PHOSPHATE  (DIHYDROCODEINE PHOSPHATE) [Concomitant]
  8. ASPIRIN [Concomitant]
  9. DIGOXIN [Concomitant]

REACTIONS (2)
  - BRADYCARDIA [None]
  - PULMONARY FIBROSIS [None]
